FAERS Safety Report 10743206 (Version 1)
Quarter: 2015Q1

REPORT INFORMATION
  Report Type: Spontaneous
  Country: US (occurrence: US)
  Receive Date: 20150127
  Receipt Date: 20150127
  Transmission Date: 20150721
  Serious: Yes (Other)
  Sender: FDA-Public Use
  Company Number: US-GILEAD-2015-0133090

PATIENT
  Age: 76 Year
  Sex: Male

DRUGS (1)
  1. ZYDELIG [Suspect]
     Active Substance: IDELALISIB
     Indication: B-CELL LYMPHOMA
     Dosage: UNK
     Route: 065
     Dates: start: 2014

REACTIONS (9)
  - White blood cell count decreased [Unknown]
  - Platelet count decreased [Unknown]
  - Agranulocytosis [Unknown]
  - Stomatitis [Unknown]
  - Haemoglobin decreased [Unknown]
  - Skin discolouration [Unknown]
  - Chapped lips [Unknown]
  - Skin ulcer [Unknown]
  - Oropharyngeal pain [Unknown]
